FAERS Safety Report 8519894 (Version 15)
Quarter: 2013Q4

REPORT INFORMATION
  Report Type: Spontaneous
  Country: US (occurrence: US)
  Receive Date: 20120418
  Receipt Date: 20131129
  Transmission Date: 20140711
  Serious: Yes (Hospitalization, Other)
  Sender: FDA-Public Use
  Company Number: US-ASTRAZENECA-2011SE32259

PATIENT
  Age: 54 Year
  Sex: Female

DRUGS (35)
  1. NEXIUM [Suspect]
     Indication: GASTROOESOPHAGEAL REFLUX DISEASE
     Route: 048
     Dates: start: 1997, end: 2009
  2. NEXIUM [Suspect]
     Indication: DYSPEPSIA
     Route: 048
     Dates: start: 1997, end: 2009
  3. NEXIUM [Suspect]
     Indication: GASTROOESOPHAGEAL REFLUX DISEASE
     Route: 048
     Dates: start: 2001
  4. NEXIUM [Suspect]
     Indication: DYSPEPSIA
     Route: 048
     Dates: start: 2001
  5. NEXIUM [Suspect]
     Indication: GASTROOESOPHAGEAL REFLUX DISEASE
     Route: 048
     Dates: start: 20020508
  6. NEXIUM [Suspect]
     Indication: DYSPEPSIA
     Route: 048
     Dates: start: 20020508
  7. NEXIUM [Suspect]
     Indication: GASTROOESOPHAGEAL REFLUX DISEASE
     Route: 048
     Dates: start: 20030630
  8. NEXIUM [Suspect]
     Indication: DYSPEPSIA
     Route: 048
     Dates: start: 20030630
  9. NEXIUM [Suspect]
     Indication: GASTROOESOPHAGEAL REFLUX DISEASE
     Route: 048
     Dates: start: 200312
  10. NEXIUM [Suspect]
     Indication: DYSPEPSIA
     Route: 048
     Dates: start: 200312
  11. NEXIUM [Suspect]
     Indication: GASTROOESOPHAGEAL REFLUX DISEASE
     Route: 048
     Dates: start: 20060730
  12. NEXIUM [Suspect]
     Indication: DYSPEPSIA
     Route: 048
     Dates: start: 20060730
  13. NEXIUM [Suspect]
     Indication: GASTROOESOPHAGEAL REFLUX DISEASE
     Route: 048
     Dates: start: 20090211
  14. NEXIUM [Suspect]
     Indication: DYSPEPSIA
     Route: 048
     Dates: start: 20090211
  15. NEXIUM [Suspect]
     Indication: GASTROOESOPHAGEAL REFLUX DISEASE
     Route: 048
     Dates: start: 20090311
  16. NEXIUM [Suspect]
     Indication: DYSPEPSIA
     Route: 048
     Dates: start: 20090311
  17. ZEGERID [Concomitant]
     Indication: GASTROOESOPHAGEAL REFLUX DISEASE
     Dates: start: 20070510
  18. OXYPROZINE [Concomitant]
  19. CYCLOBENZAPRINE [Concomitant]
     Dates: start: 20060719
  20. ESTRATEST [Concomitant]
     Dates: start: 20060901
  21. CEPHALEXIN [Concomitant]
     Dates: start: 20060925
  22. PREDNISONE [Concomitant]
     Dates: start: 20090102
  23. FLUCONAZOLE [Concomitant]
     Dates: start: 20100904
  24. SULFAMETHOXAZOLE/TMP [Concomitant]
     Dates: start: 20061204
  25. HYDROCODONE/APAP [Concomitant]
     Dosage: 7.5/750
     Dates: start: 20061026
  26. ACETAMINOPHEN/COD [Concomitant]
     Dates: start: 20061002
  27. HYDROCODONE BT-IBUPROFEN [Concomitant]
     Dates: start: 20060418
  28. ALLEGRA [Concomitant]
     Dates: start: 20020418
  29. ALLEGRA [Concomitant]
     Dates: start: 200312
  30. ALLEGRA [Concomitant]
     Dosage: AS NEEDED
     Dates: start: 200401
  31. ACIPHEX [Concomitant]
  32. NAPROXEN SODIUM [Concomitant]
  33. CIPRO [Concomitant]
     Dates: start: 20010122
  34. PROMETHAZINE [Concomitant]
     Dates: start: 20010313
  35. ZOLOFT [Concomitant]
     Dates: start: 20011105

REACTIONS (17)
  - Blindness [Unknown]
  - Bladder disorder [Unknown]
  - Foot fracture [Unknown]
  - Head injury [Unknown]
  - Hiatus hernia [Unknown]
  - Lumbar radiculopathy [Unknown]
  - Sciatica [Unknown]
  - Osteoporosis [Unknown]
  - Bone disorder [Unknown]
  - Cataract [Unknown]
  - Intervertebral disc degeneration [Unknown]
  - Astigmatism [Unknown]
  - Intervertebral disc displacement [Unknown]
  - Visual impairment [Unknown]
  - Tendonitis [Unknown]
  - Morton^s neuralgia [Unknown]
  - Vision blurred [Unknown]
